FAERS Safety Report 4372640-X (Version None)
Quarter: 2004Q2

REPORT INFORMATION
  Report Type: 
  Country: None (occurrence: None)
  Receive Date: 20040526
  Receipt Date: 20031016
  Transmission Date: 20050107
  Serious: Yes (Hospitalization)
  Sender: FDA-Public Use
  Company Number: KII-2003-0010569

PATIENT
  Age: 84 Year
  Sex: Female

DRUGS (1)
  1. OXYCONTIN [Suspect]
     Indication: PAIN
     Dosage: ORAL
     Route: 048

REACTIONS (4)
  - ATRIAL FIBRILLATION [None]
  - CONFUSIONAL STATE [None]
  - MEDICATION ERROR [None]
  - PAIN [None]
